FAERS Safety Report 14240632 (Version 1)
Quarter: 2017Q4

REPORT INFORMATION
  Report Type: Spontaneous
  Country: HU (occurrence: HU)
  Receive Date: 20171130
  Receipt Date: 20171130
  Transmission Date: 20180321
  Serious: Yes (Other)
  Sender: FDA-Public Use
  Company Number: HU-PFIZER INC-2017511879

PATIENT
  Age: 39 Year
  Sex: Female

DRUGS (6)
  1. PENTASA [Concomitant]
     Active Substance: MESALAMINE
     Indication: CROHN^S DISEASE
     Dosage: 2 G, 2X/DAY
  2. MEDROL [Suspect]
     Active Substance: METHYLPREDNISOLONE
     Indication: CROHN^S DISEASE
     Dosage: STARTING WITH 64MG, TAPERED TO 4MG BY HALVING THE DOSE, AS NEEDED
     Route: 048
  3. QUAMATEL [Concomitant]
     Active Substance: FAMOTIDINE
     Indication: PROPHYLAXIS
  4. KALDYUM [Concomitant]
     Active Substance: POTASSIUM CHLORIDE
     Dosage: 600 MG, AS NEEDED (ONE CAPSULE EVERY 2-3 DAYS FROM 16MG MEDROL)
  5. KALDYUM [Concomitant]
     Active Substance: POTASSIUM CHLORIDE
     Indication: PROPHYLAXIS
     Dosage: 1800 MG, AS NEEDED (3 CAPSULES DAILY AT 64MG MEDROL)
  6. KALDYUM [Concomitant]
     Active Substance: POTASSIUM CHLORIDE
     Dosage: 1200 MG, AS NEEDED (TWO CAPSULES DAILY AT 32MG MEDROL)

REACTIONS (15)
  - Nervousness [Unknown]
  - Muscle spasms [Unknown]
  - Body temperature increased [Recovered/Resolved]
  - Hypertrichosis [Unknown]
  - Insomnia [Unknown]
  - Peripheral swelling [Unknown]
  - Haemangioma of liver [Not Recovered/Not Resolved]
  - Head discomfort [Recovered/Resolved]
  - Fungal skin infection [Unknown]
  - Arthralgia [Unknown]
  - Abdominal pain upper [Not Recovered/Not Resolved]
  - Anterograde amnesia [Unknown]
  - Blood glucose increased [Recovered/Resolved]
  - Psychomotor hyperactivity [Unknown]
  - Muscular weakness [Unknown]

NARRATIVE: CASE EVENT DATE: 201710
